FAERS Safety Report 8258501-4 (Version None)
Quarter: 2012Q2

REPORT INFORMATION
  Report Type: 
  Country: None (occurrence: None)
  Receive Date: 20120403
  Receipt Date: 20120403
  Transmission Date: 20120825
  Serious: No
  Sender: FDA-Public Use
  Company Number: None

PATIENT
  Sex: Female

DRUGS (1)
  1. AMOXICILLIN [Suspect]
     Dosage: 500MG 1 TID ORAL
     Route: 048
     Dates: start: 20120305

REACTIONS (3)
  - FEELING HOT [None]
  - RASH GENERALISED [None]
  - SKIN DISCOLOURATION [None]
